FAERS Safety Report 17390232 (Version 5)
Quarter: 2020Q2

REPORT INFORMATION
  Report Type: Spontaneous
  Country: CA (occurrence: CA)
  Receive Date: 20200207
  Receipt Date: 20200504
  Transmission Date: 20200713
  Serious: Yes (Death, Hospitalization)
  Sender: FDA-Public Use
  Company Number: CA-BIOGEN-2020BI00828993

PATIENT
  Age: 52 Year
  Sex: Female
  Weight: 65 kg

DRUGS (4)
  1. TYSABRI [Suspect]
     Active Substance: NATALIZUMAB
     Indication: MULTIPLE SCLEROSIS
     Dosage: 95 TREATMENTS WITH TYSABRI
     Route: 042
     Dates: start: 20120724, end: 20180305
  2. TYSABRI [Suspect]
     Active Substance: NATALIZUMAB
     Dosage: 95 TREATMENTS WITH TYSABRI
     Route: 042
     Dates: start: 20190924, end: 20200107
  3. TYSABRI [Suspect]
     Active Substance: NATALIZUMAB
     Dosage: 95 TREATMENTS WITH TYSABRI
     Route: 042
     Dates: start: 20181106, end: 20190820
  4. TYSABRI [Suspect]
     Active Substance: NATALIZUMAB
     Dosage: 95 TREATMENTS WITH TYSABRI
     Route: 042
     Dates: start: 20180410, end: 20181002

REACTIONS (5)
  - Progressive multifocal leukoencephalopathy [Recovered/Resolved with Sequelae]
  - Pneumonia aspiration [Fatal]
  - Prescribed underdose [Recovered/Resolved]
  - Multiple sclerosis relapse [Unknown]
  - Seizure [Fatal]

NARRATIVE: CASE EVENT DATE: 20180410
